FAERS Safety Report 19821234 (Version 1)
Quarter: 2021Q3

REPORT INFORMATION
  Report Type: Spontaneous
  Country: FR (occurrence: FR)
  Receive Date: 20210913
  Receipt Date: 20210913
  Transmission Date: 20211014
  Serious: Yes (Hospitalization, Other)
  Sender: FDA-Public Use
  Company Number: FR-ABBVIE-12P-056-0915803-00

PATIENT
  Age: 12 Year
  Sex: Female

DRUGS (8)
  1. MICROPAKINE L.P. [Suspect]
     Active Substance: VALPROATE SODIUM
     Indication: EPILEPSY
     Route: 048
     Dates: start: 200608
  2. SPASFON LYOC [Concomitant]
     Active Substance: PHLOROGLUCINOL
     Indication: PRODUCT USED FOR UNKNOWN INDICATION
  3. MICROPAKINE L.P. [Suspect]
     Active Substance: VALPROATE SODIUM
     Dosage: 500
     Route: 065
     Dates: start: 20071009, end: 201108
  4. DEPAKINE [Suspect]
     Active Substance: VALPROATE SODIUM
     Route: 048
     Dates: start: 20070307
  5. VOGALENE [Concomitant]
     Active Substance: METOPIMAZINE
     Indication: PRODUCT USED FOR UNKNOWN INDICATION
     Dates: start: 20150612
  6. VALIUM [Concomitant]
     Active Substance: DIAZEPAM
     Indication: PRODUCT USED FOR UNKNOWN INDICATION
     Dates: start: 20071009
  7. DEPAKINE [Suspect]
     Active Substance: VALPROATE SODIUM
     Indication: EPILEPSY
     Route: 048
     Dates: start: 2004, end: 200608
  8. DEPAKINE [Suspect]
     Active Substance: VALPROATE SODIUM
     Dosage: 3 MONTHS 28 DAYS 12 HRS
     Route: 048
     Dates: start: 20110831, end: 20111228

REACTIONS (13)
  - Pancreatitis chronic [Recovered/Resolved with Sequelae]
  - Generalised tonic-clonic seizure [Unknown]
  - Hyperlactacidaemia [Unknown]
  - Gastrooesophageal reflux disease [Unknown]
  - Hyperthermia [Unknown]
  - Alopecia [Unknown]
  - Weight increased [Unknown]
  - Lipase increased [Not Recovered/Not Resolved]
  - Salivary hypersecretion [Unknown]
  - Autism spectrum disorder [Unknown]
  - Cognitive disorder [Unknown]
  - Abdominal pain [Unknown]
  - Vomiting [Not Recovered/Not Resolved]

NARRATIVE: CASE EVENT DATE: 20060816
